FAERS Safety Report 10275405 (Version 2)
Quarter: 2014Q3

REPORT INFORMATION
  Report Type: Spontaneous
  Country: US (occurrence: US)
  Receive Date: 20140703
  Receipt Date: 20140704
  Transmission Date: 20150326
  Serious: No
  Sender: FDA-Public Use
  Company Number: US-009507513-1406USA012504

PATIENT
  Age: 25 Year
  Sex: Female

DRUGS (1)
  1. NEXPLANON [Suspect]
     Active Substance: ETONOGESTREL
     Indication: CONTRACEPTION
     Dosage: ONE ROD INSERTED EVERY THREE YEARS
     Route: 059
     Dates: end: 20140701

REACTIONS (5)
  - Device kink [Recovered/Resolved]
  - Implant site pain [Unknown]
  - Keloid scar [Unknown]
  - Product quality issue [Unknown]
  - Implant site infection [Recovering/Resolving]
